FAERS Safety Report 9702513 (Version 1)
Quarter: 2013Q4

REPORT INFORMATION
  Report Type: Other
  Country: JP (occurrence: JP)
  Receive Date: 20131121
  Receipt Date: 20131121
  Transmission Date: 20140711
  Serious: Yes (Other)
  Sender: FDA-Public Use
  Company Number: JP-US-EMD SERONO, INC.-7251088

PATIENT
  Age: 68 Year
  Sex: Male

DRUGS (4)
  1. INTERFERON BETA-1A [Suspect]
     Indication: PROPHYLAXIS
     Route: 058
  2. DACARBAZINE [Concomitant]
     Indication: PROPHYLAXIS
  3. VINCRISTINE [Concomitant]
     Indication: PROPHYLAXIS
     Route: 042
  4. NIMUSTINE [Concomitant]
     Indication: PROPHYLAXIS

REACTIONS (5)
  - Eosinophilic cellulitis [Unknown]
  - Injection site pruritus [Unknown]
  - Injection site erythema [Unknown]
  - Injection site swelling [Unknown]
  - Off label use [Unknown]
